FAERS Safety Report 4761880-3 (Version None)
Quarter: 2005Q3

REPORT INFORMATION
  Report Type: 
  Country: None (occurrence: None)
  Receive Date: 20050906
  Receipt Date: 20010403
  Transmission Date: 20060218
  Serious: Yes (Death)
  Sender: FDA-Public Use
  Company Number: PHHO2001IT03034

PATIENT
  Age: 74 Year
  Sex: Female
  Weight: 72 kg

DRUGS (3)
  1. TAMOXIFEN CITRATE [Suspect]
     Route: 048
     Dates: start: 20010329
  2. CONDIUREN [Concomitant]
  3. ALUMINUM HYDROXIDE AND MAGNESIUM TRISILICATE [Concomitant]

REACTIONS (6)
  - ACUTE MYOCARDIAL INFARCTION [None]
  - CYANOSIS [None]
  - LIVIDITY [None]
  - LOSS OF CONSCIOUSNESS [None]
  - SHOCK [None]
  - SUDDEN DEATH [None]
